FAERS Safety Report 5737722-6 (Version None)
Quarter: 2008Q2

REPORT INFORMATION
  Report Type: 
  Country: None (occurrence: None)
  Receive Date: 20080514
  Receipt Date: 20080508
  Transmission Date: 20081010
  Serious: Yes (Hospitalization)
  Sender: FDA-Public Use
  Company Number: A0726897A

PATIENT
  Age: 77 Year
  Sex: Female

DRUGS (13)
  1. ADVAIR DISKUS 100/50 [Suspect]
     Indication: CHRONIC OBSTRUCTIVE PULMONARY DISEASE
     Dosage: 1PUFF TWICE PER DAY
     Route: 055
     Dates: start: 20070501
  2. SYNTHROID [Concomitant]
  3. LASIX [Concomitant]
  4. ZESTRIL [Concomitant]
  5. TOPAMAX [Concomitant]
  6. DIGOXIN [Concomitant]
  7. ASPIRIN [Concomitant]
  8. CALCIUM [Concomitant]
  9. GLUCOSAMINE [Concomitant]
  10. MULTI-VITAMIN [Concomitant]
  11. SPIRIVA [Concomitant]
  12. OXYGEN [Concomitant]
  13. COUMADIN [Concomitant]

REACTIONS (6)
  - DRUG INEFFECTIVE [None]
  - INJURY [None]
  - JOINT DISLOCATION [None]
  - LIMB CRUSHING INJURY [None]
  - OEDEMA [None]
  - UPPER LIMB FRACTURE [None]
